FAERS Safety Report 7416881-3 (Version None)
Quarter: 2011Q2

REPORT INFORMATION
  Report Type: 
  Country: None (occurrence: None)
  Receive Date: 20110415
  Receipt Date: 20110405
  Transmission Date: 20111010
  Serious: Yes (Hospitalization, Other)
  Sender: FDA-Public Use
  Company Number: US-JNJFOC-20110402571

PATIENT
  Sex: Female
  Weight: 120.2 kg

DRUGS (4)
  1. NEURONTIN [Concomitant]
     Indication: NEURALGIA
     Route: 048
  2. DURAGESIC [Suspect]
     Indication: BACK PAIN
     Route: 062
  3. FENTANYL-100 [Suspect]
     Indication: BACK PAIN
     Route: 062
  4. TOPAMAX [Concomitant]
     Indication: NEURALGIA
     Route: 048

REACTIONS (8)
  - CHOKING [None]
  - EYE INFECTION [None]
  - HIATUS HERNIA [None]
  - OESOPHAGEAL DISORDER [None]
  - FATIGUE [None]
  - WEIGHT DECREASED [None]
  - PRURITUS [None]
  - URTICARIA [None]
